FAERS Safety Report 24847331 (Version 2)
Quarter: 2025Q1

REPORT INFORMATION
  Report Type: Spontaneous
  Country: JP (occurrence: JP)
  Receive Date: 20250116
  Receipt Date: 20250303
  Transmission Date: 20250409
  Serious: Yes (Death)
  Sender: TAKEDA
  Company Number: JP-TAKEDA-2025TJP000362

PATIENT
  Age: 9 Decade
  Sex: Male

DRUGS (14)
  1. CUVITRU [Suspect]
     Active Substance: HUMAN IMMUNOGLOBULIN G
     Indication: Hypogammaglobulinaemia
     Dates: start: 20241225, end: 20241225
  2. SYMPROIC [Concomitant]
     Active Substance: NALDEMEDINE TOSYLATE
  3. HARNAL [Concomitant]
     Active Substance: TAMSULOSIN HYDROCHLORIDE
  4. ONEALFA [Concomitant]
     Active Substance: ALFACALCIDOL
  5. MIRABEGRON [Concomitant]
     Active Substance: MIRABEGRON
  6. ELOBIXIBAT [Concomitant]
     Active Substance: ELOBIXIBAT
  7. SULFAMETHOXAZOLE\TRIMETHOPRIM [Concomitant]
     Active Substance: SULFAMETHOXAZOLE\TRIMETHOPRIM
  8. CALONAL [Concomitant]
     Active Substance: ACETAMINOPHEN
  9. MAGNESIUM OXIDE [Concomitant]
     Active Substance: MAGNESIUM OXIDE
  10. DAYVIGO [Concomitant]
     Active Substance: LEMBOREXANT
  11. TRAZODONE HYDROCHLORIDE [Concomitant]
     Active Substance: TRAZODONE HYDROCHLORIDE
  12. ZOVIRAX [Concomitant]
     Active Substance: ACYCLOVIR
  13. CALCIUM CARBONATE\CHOLECALCIFEROL\MAGNESIUM CARBONATE [Concomitant]
     Active Substance: CALCIUM CARBONATE\CHOLECALCIFEROL\MAGNESIUM CARBONATE
  14. DICLOFENAC SODIUM [Concomitant]
     Active Substance: DICLOFENAC SODIUM

REACTIONS (1)
  - COVID-19 [Fatal]

NARRATIVE: CASE EVENT DATE: 20250107
